FAERS Safety Report 21689114 (Version 1)
Quarter: 2022Q4

REPORT INFORMATION
  Report Type: Spontaneous
  Country: US (occurrence: None)
  Receive Date: 20221205
  Receipt Date: 20221205
  Transmission Date: 20230113
  Serious: No
  Sender: FDA-Public Use
  Company Number: None

PATIENT
  Age: 60 Year
  Sex: Male

DRUGS (1)
  1. ABIRATERONE [Suspect]
     Active Substance: ABIRATERONE
     Dosage: 1000 MG DAILY ORAL
     Route: 048

REACTIONS (9)
  - Dehydration [None]
  - Product dose omission issue [None]
  - Blood potassium decreased [None]
  - Constipation [None]
  - Muscle spasms [None]
  - Pollakiuria [None]
  - Hot flush [None]
  - Night sweats [None]
  - Joint injury [None]

NARRATIVE: CASE EVENT DATE: 20221205
